FAERS Safety Report 23240328 (Version 1)
Quarter: 2023Q4

REPORT INFORMATION
  Report Type: Spontaneous
  Country: US (occurrence: None)
  Receive Date: 20231128
  Receipt Date: 20231128
  Transmission Date: 20240110
  Serious: Yes (Other)
  Sender: FDA-Public Use
  Company Number: None

PATIENT
  Age: 43 Year
  Sex: Female
  Weight: 75.15 kg

DRUGS (1)
  1. METHIMAZOLE [Suspect]
     Active Substance: METHIMAZOLE
     Indication: Drug therapy
     Dates: start: 20230814

REACTIONS (8)
  - Craniofacial deformity [None]
  - Swelling face [None]
  - Peripheral swelling [None]
  - Oedema peripheral [None]
  - Oedema peripheral [None]
  - Oedema peripheral [None]
  - Paraesthesia [None]
  - Pain in extremity [None]

NARRATIVE: CASE EVENT DATE: 20231015
